FAERS Safety Report 25552170 (Version 1)
Quarter: 2025Q3

REPORT INFORMATION
  Report Type: Spontaneous
  Country: EU (occurrence: EU)
  Receive Date: 20250715
  Receipt Date: 20250715
  Transmission Date: 20251021
  Serious: Yes (Life-Threatening, Hospitalization)
  Sender: CHEPLAPHARM
  Company Number: None

PATIENT
  Age: 58 Year
  Sex: Female
  Weight: 52.9 kg

DRUGS (29)
  1. DOXORUBICIN [Suspect]
     Active Substance: DOXORUBICIN
     Indication: Diffuse large B-cell lymphoma
     Dosage: REGIMEN #1?R-CHOP
     Route: 042
     Dates: start: 20220603, end: 20220809
  2. OLANZAPINE [Suspect]
     Active Substance: OLANZAPINE
     Dates: start: 20220603
  3. PREDNISOLONE [Suspect]
     Active Substance: PREDNISOLONE
     Indication: Diffuse large B-cell lymphoma
     Dosage: REGIMEN #1?R-CHOP
     Route: 042
     Dates: start: 20220603, end: 20220809
  4. CYCLOPHOSPHAMIDE [Suspect]
     Active Substance: CYCLOPHOSPHAMIDE
     Indication: Diffuse large B-cell lymphoma
     Dosage: R-CHOP
     Route: 042
     Dates: start: 20220603, end: 20220809
  5. LENALIDOMIDE [Suspect]
     Active Substance: LENALIDOMIDE
     Indication: Diffuse large B-cell lymphoma
     Route: 048
     Dates: start: 20220603, end: 20220817
  6. LENALIDOMIDE [Suspect]
     Active Substance: LENALIDOMIDE
     Indication: Diffuse large B-cell lymphoma
     Route: 048
     Dates: start: 20220831
  7. RITUXIMAB [Suspect]
     Active Substance: RITUXIMAB
     Indication: Diffuse large B-cell lymphoma
     Dosage: R-CHOP
     Route: 042
     Dates: start: 20220603, end: 20220809
  8. TAFASITAMAB [Suspect]
     Active Substance: TAFASITAMAB
     Indication: Diffuse large B-cell lymphoma
     Route: 042
     Dates: start: 20220603, end: 20220809
  9. TAFASITAMAB [Suspect]
     Active Substance: TAFASITAMAB
     Indication: Diffuse large B-cell lymphoma
     Dates: start: 20220603, end: 20220817
  10. TAFASITAMAB [Suspect]
     Active Substance: TAFASITAMAB
     Indication: Diffuse large B-cell lymphoma
     Dates: start: 20220824
  11. VINCRISTINE [Suspect]
     Active Substance: VINCRISTINE
     Indication: Diffuse large B-cell lymphoma
     Dosage: REGIMEN #1?R-CHOP
     Route: 042
     Dates: start: 20220603, end: 20220809
  12. Akynzeo [Concomitant]
     Dates: start: 20220601
  13. ERYTHROPOIETIN [Concomitant]
     Active Substance: ERYTHROPOIETIN
     Dates: start: 20220707
  14. BISOPROLOL FUMARATE [Concomitant]
     Active Substance: BISOPROLOL FUMARATE
     Dates: start: 20220606
  15. Glandomed [Concomitant]
     Dates: start: 20220610
  16. IMODIUM [Concomitant]
     Active Substance: LOPERAMIDE HYDROCHLORIDE
     Dates: start: 20220530
  17. Laxogol [Concomitant]
     Dates: start: 20220607
  18. Lidaprim [Concomitant]
     Dates: start: 20220601
  19. MAGNESIUM [Concomitant]
     Active Substance: MAGNESIUM
     Dates: start: 20220726
  20. ONDANSETRON HYDROCHLORIDE [Concomitant]
     Active Substance: ONDANSETRON HYDROCHLORIDE
     Dates: start: 20220607
  21. Ovestinon [Concomitant]
     Dates: start: 20220530
  22. PANTOPRAZOLE SODIUM [Concomitant]
     Active Substance: PANTOPRAZOLE SODIUM
     Dates: start: 20220530
  23. ACETAMINOPHEN [Concomitant]
     Active Substance: ACETAMINOPHEN
     Dates: start: 20220602
  24. Paspertin [Concomitant]
     Dates: start: 20220607
  25. Passedan [Concomitant]
     Dates: start: 20220530
  26. DEXIBUPROFEN [Concomitant]
     Active Substance: DEXIBUPROFEN
     Dates: start: 20220530
  27. ASPIRIN [Concomitant]
     Active Substance: ASPIRIN
     Dates: start: 20220601
  28. TRAZODONE HYDROCHLORIDE [Concomitant]
     Active Substance: TRAZODONE HYDROCHLORIDE
     Dates: start: 20220817
  29. VALACYCLOVIR HYDROCHLORIDE [Concomitant]
     Active Substance: VALACYCLOVIR HYDROCHLORIDE
     Dates: start: 20220531

REACTIONS (3)
  - Neutropenia [Recovered/Resolved]
  - Micrococcus infection [Recovered/Resolved]
  - Off label use [Not Recovered/Not Resolved]

NARRATIVE: CASE EVENT DATE: 20220603
